FAERS Safety Report 8840386 (Version 2)
Quarter: 2013Q3

REPORT INFORMATION
  Report Type: Spontaneous
  Country: PR (occurrence: US)
  Receive Date: 20121015
  Receipt Date: 20130925
  Transmission Date: 20140515
  Serious: Yes (Disabling, Other)
  Sender: FDA-Public Use
  Company Number: US-MERCK-1210USA004464

PATIENT
  Sex: Female

DRUGS (3)
  1. FOSAMAX [Suspect]
     Indication: OSTEOPOROSIS
     Dosage: UNK UNK, BID
     Route: 048
     Dates: start: 2007
  2. FOSAMAX [Suspect]
     Dosage: 70 MG, QW
     Route: 048
     Dates: start: 20100621
  3. ALENDRONATE SODIUM [Suspect]
     Indication: OSTEOPOROSIS
     Dosage: UNK
     Route: 048
     Dates: start: 2005, end: 2012

REACTIONS (12)
  - Femoral neck fracture [Not Recovered/Not Resolved]
  - Hip arthroplasty [Unknown]
  - Bone cyst excision [Unknown]
  - Low turnover osteopathy [Not Recovered/Not Resolved]
  - Fall [Unknown]
  - Dental prosthesis user [Unknown]
  - Hypertension [Unknown]
  - Osteoarthritis [Unknown]
  - Osteoarthritis [Unknown]
  - Bone cyst [Unknown]
  - Osteopenia [Unknown]
  - Pain in extremity [Unknown]
